FAERS Safety Report 11570475 (Version 1)
Quarter: 2015Q3

REPORT INFORMATION
  Report Type: Spontaneous
  Country: US (occurrence: US)
  Receive Date: 20150916
  Receipt Date: 20150916
  Transmission Date: 20151125
  Serious: No
  Sender: FDA-Public Use
  Company Number: US-ELI_LILLY_AND_COMPANY-US200909002213

PATIENT
  Sex: Female

DRUGS (2)
  1. FORTICAL                           /00371903/ [Concomitant]
  2. FORTEO [Suspect]
     Active Substance: TERIPARATIDE
     Indication: OSTEOPOROSIS
     Dosage: UNK, UNK
     Dates: end: 20090809

REACTIONS (10)
  - Arthralgia [Recovered/Resolved]
  - Peripheral coldness [Recovered/Resolved]
  - Myalgia [Recovered/Resolved]
  - Contusion [Recovered/Resolved]
  - Injection site bruising [Recovered/Resolved]
  - Constipation [Recovered/Resolved]
  - Asthenia [Recovered/Resolved]
  - Nausea [Recovered/Resolved]
  - Muscular weakness [Recovered/Resolved]
  - Feeling hot [Recovered/Resolved]
